FAERS Safety Report 6359376-0 (Version None)
Quarter: 2009Q3

REPORT INFORMATION
  Report Type: 
  Country: None (occurrence: None)
  Receive Date: 20090914
  Receipt Date: 20090902
  Transmission Date: 20100115
  Serious: Yes (Other)
  Sender: FDA-Public Use
  Company Number: 2009SP023617

PATIENT
  Age: 30 Year
  Sex: Female
  Weight: 70 kg

DRUGS (1)
  1. MERCILON (DESOGESTREL/ETHINYLESTRADIOL) (DESOGESTREL/ETHINYLESTRADIOL) [Suspect]
     Indication: CONTRACEPTION
     Dosage: 1 DF; QD; PO
     Route: 048
     Dates: start: 20090501, end: 20090601

REACTIONS (1)
  - ERYTHEMA NODOSUM [None]
